FAERS Safety Report 4957064-6 (Version None)
Quarter: 2006Q1

REPORT INFORMATION
  Report Type: 
  Country: None (occurrence: None)
  Receive Date: 20060201
  Receipt Date: 20051123
  Transmission Date: 20060701
  Serious: No
  Sender: FDA-Public Use
  Company Number: 2005PV004775

PATIENT
  Age: 60 Year
  Sex: Male
  Weight: 141.0687 kg

DRUGS (9)
  1. BYETTA [Suspect]
     Indication: DIABETES MELLITUS NON-INSULIN-DEPENDENT
     Dosage: SEE IMAGE
     Route: 058
     Dates: start: 20050831, end: 20051108
  2. BYETTA [Suspect]
     Indication: DIABETES MELLITUS NON-INSULIN-DEPENDENT
     Dosage: SEE IMAGE
     Route: 058
     Dates: start: 20051109
  3. ACTOS [Concomitant]
  4. METFORMIN [Concomitant]
  5. GLIMEPIRIDE [Concomitant]
  6. FUROSEMIDE [Concomitant]
  7. SPIRONOLACTONE [Concomitant]
  8. NORVASC [Concomitant]
  9. CARDIZEM LA [Concomitant]

REACTIONS (6)
  - ANOREXIA [None]
  - FLATULENCE [None]
  - HEART RATE INCREASED [None]
  - MYOCARDIAL ISCHAEMIA [None]
  - NAUSEA [None]
  - WEIGHT DECREASED [None]
